FAERS Safety Report 23350602 (Version 2)
Quarter: 2024Q2

REPORT INFORMATION
  Report Type: Spontaneous
  Country: DK (occurrence: DK)
  Receive Date: 20231229
  Receipt Date: 20240509
  Transmission Date: 20240715
  Serious: Yes (Hospitalization)
  Sender: FDA-Public Use
  Company Number: DK-BAUSCH-BL-2023-019101

PATIENT
  Age: 22 Year
  Sex: Male

DRUGS (1)
  1. MESALAMINE [Suspect]
     Active Substance: MESALAMINE
     Indication: Colitis ulcerative
     Dosage: SLOW RELEASE TABLETS
     Route: 065

REACTIONS (3)
  - Biliary obstruction [Recovered/Resolved]
  - Cholangitis [Recovered/Resolved]
  - Pneumonitis [Recovered/Resolved]
